FAERS Safety Report 6103320-8 (Version None)
Quarter: 2009Q1

REPORT INFORMATION
  Report Type: 
  Country: None (occurrence: None)
  Receive Date: 20090305
  Receipt Date: 20090226
  Transmission Date: 20090719
  Serious: Yes (Hospitalization)
  Sender: FDA-Public Use
  Company Number: US-BIOGENIDEC-2008BI009070

PATIENT
  Age: 53 Year
  Sex: Male
  Weight: 91 kg

DRUGS (3)
  1. AVONEX [Suspect]
     Indication: MULTIPLE SCLEROSIS
     Route: 030
     Dates: start: 20050501
  2. METFORMIN [Concomitant]
     Indication: TYPE 2 DIABETES MELLITUS
     Dates: start: 19990101
  3. GLIMEPIRIDE [Concomitant]
     Indication: TYPE 2 DIABETES MELLITUS

REACTIONS (5)
  - GAIT DISTURBANCE [None]
  - JOINT INJURY [None]
  - LUMBAR RADICULOPATHY [None]
  - PROCEDURAL COMPLICATION [None]
  - ROAD TRAFFIC ACCIDENT [None]
